FAERS Safety Report 4947645-8 (Version None)
Quarter: 2006Q1

REPORT INFORMATION
  Report Type: 
  Country: None (occurrence: None)
  Receive Date: 20060317
  Receipt Date: 20060317
  Transmission Date: 20060701
  Serious: Yes (Other)
  Sender: FDA-Public Use
  Company Number: None

PATIENT
  Age: 60 Year
  Sex: Male
  Weight: 70.3075 kg

DRUGS (1)
  1. BUPROPION SR  -TEVA-   150 MG   TEVA [Suspect]
     Indication: DEPRESSION
     Dosage: ONE TABLET  TWICE DAIL   PO
     Route: 048
     Dates: start: 20060211, end: 20060101

REACTIONS (5)
  - DEPRESSION [None]
  - DISEASE RECURRENCE [None]
  - FLUSHING [None]
  - PHARMACEUTICAL PRODUCT COMPLAINT [None]
  - THERAPEUTIC RESPONSE UNEXPECTED WITH DRUG SUBSTITUTION [None]
